FAERS Safety Report 6083860-0 (Version None)
Quarter: 2009Q1

REPORT INFORMATION
  Report Type: 
  Country: None (occurrence: None)
  Receive Date: 20090217
  Receipt Date: 20090217
  Transmission Date: 20090719
  Serious: Yes (Hospitalization)
  Sender: FDA-Public Use
  Company Number: None

PATIENT
  Sex: Male
  Weight: 81 kg

DRUGS (2)
  1. FLUDARIBINE [Suspect]
     Indication: CORD BLOOD TRANSPLANT THERAPY
     Dosage: 62 MG DAILY X 5 IV
     Route: 042
     Dates: start: 20081201, end: 20081205
  2. CLYCLOPHOSPHAMIDE [Suspect]
     Indication: CORD BLOOD TRANSPLANT THERAPY
     Dosage: 1800 MG DAILY X 2 IV
     Route: 042
     Dates: start: 20081206, end: 20081207

REACTIONS (2)
  - BACILLUS INFECTION [None]
  - BLOOD CULTURE POSITIVE [None]
